FAERS Safety Report 13545326 (Version 2)
Quarter: 2017Q4

REPORT INFORMATION
  Report Type: Spontaneous
  Country: US (occurrence: US)
  Receive Date: 20170515
  Receipt Date: 20171120
  Transmission Date: 20180320
  Serious: Yes (Life-Threatening, Hospitalization)
  Sender: FDA-Public Use
  Company Number: US-JNJFOC-20170511220

PATIENT
  Age: 46 Year
  Sex: Male

DRUGS (1)
  1. INVOKANA [Suspect]
     Active Substance: CANAGLIFLOZIN
     Indication: DIABETES MELLITUS MANAGEMENT
     Route: 048
     Dates: start: 20150415

REACTIONS (6)
  - Pneumonia aspiration [Recovering/Resolving]
  - Acute kidney injury [Recovered/Resolved]
  - Septic shock [Recovering/Resolving]
  - Multiple organ dysfunction syndrome [Recovering/Resolving]
  - Diabetic ketoacidosis [Recovering/Resolving]
  - Thrombocytopenia [Recovering/Resolving]

NARRATIVE: CASE EVENT DATE: 20150424
